FAERS Safety Report 15391387 (Version 1)
Quarter: 2020Q3

REPORT INFORMATION
  Report Type: Spontaneous
  Country: SE (occurrence: SE)
  Receive Date: 20180917
  Receipt Date: 20180917
  Transmission Date: 20201104
  Serious: Yes (Hospitalization)
  Sender: FDA-Public Use
  Company Number: IND-SE-009507513-1809SWE004106

PATIENT
  Age: 52 Year
  Sex: Female

DRUGS (9)
  1. MELATONIN [Concomitant]
     Active Substance: MELATONIN
  2. MADOPARK [Concomitant]
     Active Substance: BENSERAZIDE HYDROCHLORIDE\LEVODOPA
  3. LEVAXIN [Concomitant]
     Active Substance: LEVOTHYROXINE SODIUM
  4. SUMATRIPTAN. [Concomitant]
     Active Substance: SUMATRIPTAN
     Dosage: AS NECESSARY
  5. BETAPRED (BETAMETHASONE SODIUM PHOSPHATE) [Concomitant]
     Dosage: AS NECESSARY
  6. PRAMIPEXOLE. [Concomitant]
     Active Substance: PRAMIPEXOLE
  7. OMEPRAZOLE. [Concomitant]
     Active Substance: OMEPRAZOLE
  8. ARCOXIA [Suspect]
     Active Substance: ETORICOXIB
     Indication: BURSITIS
     Dosage: 60 MG, QD
     Route: 048
     Dates: start: 20180815, end: 20180818
  9. EFEXOR DEPOT [Concomitant]
     Active Substance: VENLAFAXINE HYDROCHLORIDE

REACTIONS (1)
  - Pancreatitis [Not Recovered/Not Resolved]

NARRATIVE: CASE EVENT DATE: 20180818
